FAERS Safety Report 7127616-6 (Version None)
Quarter: 2010Q4

REPORT INFORMATION
  Report Type: 
  Country: None (occurrence: None)
  Receive Date: 20101130
  Receipt Date: 20101115
  Transmission Date: 20110411
  Serious: Yes (Other)
  Sender: FDA-Public Use
  Company Number: US-AMGEN-KDL352269

PATIENT

DRUGS (2)
  1. ENBREL [Suspect]
     Indication: RHEUMATOID ARTHRITIS
     Dosage: 50 MG, QWK
     Route: 058
     Dates: start: 20081106
  2. TREXALL [Concomitant]

REACTIONS (16)
  - ABDOMINAL DISTENSION [None]
  - ANGER [None]
  - ASTHENIA [None]
  - EYE OEDEMA [None]
  - FATIGUE [None]
  - FEELING ABNORMAL [None]
  - FLUID RETENTION [None]
  - INJECTION SITE ERYTHEMA [None]
  - INJECTION SITE PAIN [None]
  - INJECTION SITE PRURITUS [None]
  - IRRITABILITY [None]
  - LOOSE TOOTH [None]
  - MALAISE [None]
  - OCULAR HYPERAEMIA [None]
  - PALPITATIONS [None]
  - TOOTH FRACTURE [None]
